FAERS Safety Report 13085973 (Version 8)
Quarter: 2019Q1

REPORT INFORMATION
  Report Type: Spontaneous
  Country: US (occurrence: US)
  Receive Date: 20170104
  Receipt Date: 20190221
  Transmission Date: 20190417
  Serious: Yes (Hospitalization, Other)
  Sender: FDA-Public Use
  Company Number: US-PFIZER INC-2016601568

PATIENT
  Age: 56 Year
  Sex: Male

DRUGS (4)
  1. GABAPENTIN. [Concomitant]
     Active Substance: GABAPENTIN
     Dosage: UNK
  2. LYRICA [Suspect]
     Active Substance: PREGABALIN
     Indication: ARTHRALGIA
     Dosage: UNK
     Dates: start: 2006, end: 201608
  3. LYRICA [Suspect]
     Active Substance: PREGABALIN
     Indication: PAIN
  4. HYDROCODONE [Concomitant]
     Active Substance: HYDROCODONE
     Indication: PAIN
     Dosage: UNK
     Dates: start: 2006

REACTIONS (8)
  - Brain injury [Unknown]
  - Gambling [Unknown]
  - Homicidal ideation [Unknown]
  - Impulsive behaviour [Unknown]
  - Aggression [Unknown]
  - Personality change [Not Recovered/Not Resolved]
  - Abnormal behaviour [Not Recovered/Not Resolved]
  - Toxicity to various agents [Unknown]
